FAERS Safety Report 4618118-7 (Version None)
Quarter: 2005Q1

REPORT INFORMATION
  Report Type: 
  Country: None (occurrence: None)
  Receive Date: 20050322
  Receipt Date: 20050310
  Transmission Date: 20050727
  Serious: Yes (Hospitalization, Other)
  Sender: FDA-Public Use
  Company Number: 2005043864

PATIENT
  Age: 49 Year
  Sex: Female
  Weight: 88.905 kg

DRUGS (5)
  1. NEURONTIN [Suspect]
     Indication: DEPRESSION
     Dosage: ORAL
     Route: 048
     Dates: end: 20041101
  2. ALL OTHER NON-THERAPEUTIC PRODUCTS (ALL OTHER NON-THERAPEUTIC PRODUCTS [Suspect]
     Indication: ILL-DEFINED DISORDER
     Dates: end: 20041101
  3. LEVOTHYROXINE SODIUM [Concomitant]
  4. ROSUVASTATIN (ROSUVASTATIN) [Concomitant]
  5. VERAPAMIL [Concomitant]

REACTIONS (3)
  - AMNESIA [None]
  - DEPRESSION [None]
  - SUICIDAL IDEATION [None]
